FAERS Safety Report 9802865 (Version 1)
Quarter: 2014Q1

REPORT INFORMATION
  Report Type: Spontaneous
  Country: US (occurrence: None)
  Receive Date: 20140106
  Receipt Date: 20140106
  Transmission Date: 20141002
  Serious: Yes (Death, Hospitalization)
  Sender: FDA-Public Use
  Company Number: None

PATIENT
  Age: 68 Year
  Sex: Male
  Weight: 79.4 kg

DRUGS (2)
  1. OCTREOTIDE [Suspect]
     Indication: PROSTATE CANCER
     Dosage: 20 MG IM DAY 1 Q 4 WEEKS
     Route: 030
     Dates: start: 20131114
  2. PREDNISONE [Suspect]
     Route: 048
     Dates: start: 20131114

REACTIONS (9)
  - Multi-organ failure [None]
  - Metabolic acidosis [None]
  - Respiratory failure [None]
  - Ischaemia [None]
  - Sepsis [None]
  - Renal failure [None]
  - Pyrexia [None]
  - Diarrhoea [None]
  - Ejection fraction decreased [None]
